FAERS Safety Report 6252823-4 (Version None)
Quarter: 2009Q2

REPORT INFORMATION
  Report Type: 
  Country: None (occurrence: None)
  Receive Date: 20090629
  Receipt Date: 20090629
  Transmission Date: 20091009
  Serious: Yes (Other)
  Sender: FDA-Public Use
  Company Number: None

PATIENT
  Age: 43 Year
  Sex: Female
  Weight: 159.2126 kg

DRUGS (2)
  1. LEVAQUIN [Suspect]
     Indication: ASTHMA
     Dosage: 500 MG QD IV DRIP
     Route: 041
     Dates: start: 20090608, end: 20090608
  2. LEVAQUIN [Suspect]
     Indication: CONDITION AGGRAVATED
     Dosage: 500 MG QD IV DRIP
     Route: 041
     Dates: start: 20090608, end: 20090608

REACTIONS (2)
  - DYSPNOEA [None]
  - TACHYCARDIA [None]
